FAERS Safety Report 4283474-9 (Version None)
Quarter: 2004Q1

REPORT INFORMATION
  Report Type: 
  Country: None (occurrence: None)
  Receive Date: 20040202
  Receipt Date: 20040121
  Transmission Date: 20041129
  Serious: Yes (Other)
  Sender: FDA-Public Use
  Company Number: GB-BRISTOL-MYERS SQUIBB COMPANY-12491924

PATIENT
  Age: 43 Year
  Sex: Male

DRUGS (4)
  1. IFOSFAMIDE [Suspect]
     Indication: NON-HODGKIN'S LYMPHOMA
     Route: 042
     Dates: start: 20031101, end: 20031101
  2. MESNA [Concomitant]
  3. ETOPOSIDE [Concomitant]
  4. EPIRUBICIN [Concomitant]

REACTIONS (1)
  - ENCEPHALOPATHY [None]
